FAERS Safety Report 16010369 (Version 1)
Quarter: 2019Q1

REPORT INFORMATION
  Report Type: Spontaneous
  Country: GB (occurrence: GB)
  Receive Date: 20190227
  Receipt Date: 20190227
  Transmission Date: 20190418
  Serious: Yes (Hospitalization, Other)
  Sender: FDA-Public Use
  Company Number: GB-TEVA-2019-GB-1015897

PATIENT
  Age: 56 Year
  Sex: Female
  Weight: 73.2 kg

DRUGS (5)
  1. VAGIFEM [Concomitant]
     Active Substance: ESTRADIOL
  2. IBUPROFEN. [Concomitant]
     Active Substance: IBUPROFEN
  3. DULOXETINE. [Suspect]
     Active Substance: DULOXETINE
     Indication: FIBROMYALGIA
     Route: 048
     Dates: start: 20190122, end: 20190124
  4. PREGABALIN. [Concomitant]
     Active Substance: PREGABALIN
  5. OMEPRAZOLE. [Concomitant]
     Active Substance: OMEPRAZOLE

REACTIONS (5)
  - Lethargy [Unknown]
  - Sepsis [Unknown]
  - Agitation [Unknown]
  - Clonus [Unknown]
  - Serotonin syndrome [Recovered/Resolved]

NARRATIVE: CASE EVENT DATE: 20190124
